FAERS Safety Report 9611967 (Version 2)
Quarter: 2013Q4

REPORT INFORMATION
  Report Type: Spontaneous
  Country: FR (occurrence: FR)
  Receive Date: 20131010
  Receipt Date: 20131010
  Transmission Date: 20140711
  Serious: Yes (Life-Threatening, Hospitalization)
  Sender: FDA-Public Use
  Company Number: FR-SANOFI-AVENTIS-2013SA077625

PATIENT
  Age: 73 Year
  Sex: Female

DRUGS (12)
  1. LOVENOX [Suspect]
     Indication: ARRHYTHMIA
     Route: 058
     Dates: start: 20130114, end: 20130209
  2. PREVISCAN [Suspect]
     Indication: ARRHYTHMIA
     Dosage: DOSE:25 MG EVERY 2 DAYS / 30MG EVERY 2 DAYS
     Route: 048
     Dates: start: 2008, end: 20130214
  3. LASILIX SPECIAL [Concomitant]
     Dosage: STRENGTH: 500 MG
     Route: 048
  4. TRAMADOL [Concomitant]
  5. HEMIGOXINE NATIVELLE [Concomitant]
     Dosage: STRENGTH: 0.125 MG
     Route: 048
  6. RAMIPRIL [Concomitant]
  7. DESLORATADINE [Concomitant]
  8. CACIT VITAMINE D3 [Concomitant]
  9. CITALOPRAM [Concomitant]
  10. KALEORID [Concomitant]
  11. METFORMIN [Concomitant]
  12. VERAPAMIL [Concomitant]

REACTIONS (7)
  - Compartment syndrome [Recovered/Resolved with Sequelae]
  - Anaemia [Recovered/Resolved]
  - Nasal mucosal discolouration [Recovered/Resolved]
  - Pallor [Recovered/Resolved]
  - Malaise [Recovered/Resolved]
  - Haematoma [Recovered/Resolved]
  - Shock haemorrhagic [Recovered/Resolved]
